FAERS Safety Report 12917124 (Version 1)
Quarter: 2016Q4

REPORT INFORMATION
  Report Type: Spontaneous
  Country: US (occurrence: US)
  Receive Date: 20161107
  Receipt Date: 20161107
  Transmission Date: 20170207
  Serious: Yes (Other)
  Sender: FDA-Public Use
  Company Number: US-BAYER-2016-208814

PATIENT
  Sex: Female

DRUGS (1)
  1. MAGNEVIST [Suspect]
     Active Substance: GADOPENTETATE DIMEGLUMINE
     Dosage: UNK UNK, ONCE

REACTIONS (10)
  - Neuralgia [None]
  - Cognitive disorder [None]
  - Headache [None]
  - Nausea [None]
  - Pain in extremity [None]
  - Blister [None]
  - Nontherapeutic agent blood positive [None]
  - Confusional state [None]
  - Limb discomfort [None]
  - Burning sensation [None]
